FAERS Safety Report 15724724 (Version 2)
Quarter: 2019Q1

REPORT INFORMATION
  Report Type: Report from Study
  Country: AU (occurrence: AU)
  Receive Date: 20181214
  Receipt Date: 20190214
  Transmission Date: 20190417
  Serious: Yes (Hospitalization)
  Sender: FDA-Public Use
  Company Number: AU-EISAI MEDICAL RESEARCH-EC-2018-049146

PATIENT
  Age: 67 Year
  Sex: Female
  Weight: 62 kg

DRUGS (12)
  1. LENVATINIB [Suspect]
     Active Substance: LENVATINIB
     Indication: CLEAR CELL RENAL CELL CARCINOMA
     Route: 048
     Dates: start: 20180813, end: 20181211
  2. EVEROLIMUS. [Suspect]
     Active Substance: EVEROLIMUS
     Indication: CLEAR CELL RENAL CELL CARCINOMA
     Route: 048
     Dates: start: 20180813, end: 20181211
  3. LORATADINE. [Concomitant]
     Active Substance: LORATADINE
  4. ATORVASTATIN [Concomitant]
     Active Substance: ATORVASTATIN
  5. MERSYNDOL [Concomitant]
  6. PERINDOPRIL [Concomitant]
     Active Substance: PERINDOPRIL
  7. LENVATINIB [Suspect]
     Active Substance: LENVATINIB
     Route: 048
     Dates: start: 20181217
  8. PERINDOPRIL/ARGINE/AMLODIPINE [Concomitant]
  9. EVEROLIMUS. [Suspect]
     Active Substance: EVEROLIMUS
     Route: 048
     Dates: start: 20181217
  10. CALTRATE [Concomitant]
     Active Substance: CALCIUM CARBONATE
  11. VITAMIN D [Concomitant]
     Active Substance: CHOLECALCIFEROL
  12. ONDANSETRON [Concomitant]
     Active Substance: ONDANSETRON

REACTIONS (1)
  - Gastroenteritis [Recovered/Resolved]

NARRATIVE: CASE EVENT DATE: 20181211
